FAERS Safety Report 5449242-7 (Version None)
Quarter: 2007Q3

REPORT INFORMATION
  Report Type: 
  Country: None (occurrence: None)
  Receive Date: 20070911
  Receipt Date: 20070829
  Transmission Date: 20080115
  Serious: Yes (Hospitalization, Other)
  Sender: FDA-Public Use
  Company Number: US-SHR-US-2007-032522

PATIENT
  Age: 44 Year
  Sex: Female

DRUGS (3)
  1. BETASERON [Suspect]
     Indication: RELAPSING-REMITTING MULTIPLE SCLEROSIS
     Dosage: 8 MIU, EVERY 2D
     Route: 058
     Dates: start: 20040825
  2. TOPAMAX [Concomitant]
     Indication: HEADACHE
     Dosage: 50 MG, 3X/DAY
  3. ANTI-SMOKING AGENTS [Concomitant]

REACTIONS (4)
  - EMPHYSEMA [None]
  - GAIT DISTURBANCE [None]
  - GENITAL HAEMORRHAGE [None]
  - POST PROCEDURAL COMPLICATION [None]
